FAERS Safety Report 8016900-X (Version None)
Quarter: 2012Q1

REPORT INFORMATION
  Report Type: 
  Country: None (occurrence: None)
  Receive Date: 20120102
  Receipt Date: 20111220
  Transmission Date: 20120608
  Serious: Yes (Hospitalization, Other)
  Sender: FDA-Public Use
  Company Number: PHHY2011US12520

PATIENT
  Sex: Female

DRUGS (16)
  1. LOVASTATIN [Concomitant]
     Indication: BLOOD CHOLESTEROL
     Dosage: 40 MG, BID (ONE IN MORNING AND ONE OR TWO AT NIGHT)
     Route: 048
     Dates: start: 20060101
  2. FUROSEMIDE [Concomitant]
     Indication: OEDEMA
     Dosage: 20 MG, ONCE A WEEK
     Dates: end: 20100401
  3. RAMIPRIL [Concomitant]
  4. METFORMIN HCL [Concomitant]
     Dosage: 500 MG, BID
  5. ANTIBIOTICS [Concomitant]
     Indication: URINARY TRACT INFECTION
     Dosage: UNK UKN, UNK
  6. PREVACID [Concomitant]
     Dosage: 30 MG, UNK
  7. POTASSIUM [Concomitant]
     Indication: OEDEMA
     Dosage: 20 MEQ, PRN
  8. LABETALOL HCL [Concomitant]
     Indication: HYPERTENSION
     Dosage: 400 MG, TWO IN MORNING AND 2 AT NIGHT
     Route: 048
     Dates: start: 20090101
  9. AMITRIPTYLINE HCL [Concomitant]
     Dosage: 100 MG, UNK
     Route: 048
     Dates: start: 20060101
  10. COUMADIN [Concomitant]
     Dosage: 5 MG, UNK
  11. DOXAZOSIN MESYLATE [Concomitant]
     Dosage: 2 MG, QD
  12. TEKTURNA [Suspect]
     Indication: HYPERTENSION
     Dosage: 300 MG, QD
     Route: 048
     Dates: start: 20090101
  13. NEXIUM [Concomitant]
     Dosage: 40 MG, UNK
  14. FISH OIL [Concomitant]
  15. ANTIHYPERTENSIVE DRUGS [Concomitant]
     Dosage: UNK UKN, UNK
     Dates: start: 20110816
  16. COUMADIN [Concomitant]
     Dosage: 2.5 MG, QD

REACTIONS (29)
  - DIASTOLIC DYSFUNCTION [None]
  - CREPITATIONS [None]
  - GAIT DISTURBANCE [None]
  - BLOOD PRESSURE FLUCTUATION [None]
  - ATRIAL FIBRILLATION [None]
  - ABDOMINAL PAIN UPPER [None]
  - MITRAL VALVE INCOMPETENCE [None]
  - CARDIOMEGALY [None]
  - CHEST DISCOMFORT [None]
  - BRAIN NATRIURETIC PEPTIDE INCREASED [None]
  - HEADACHE [None]
  - DIZZINESS [None]
  - HEART RATE IRREGULAR [None]
  - DYSPNOEA EXERTIONAL [None]
  - PULMONARY HYPERTENSION [None]
  - VENOUS PRESSURE JUGULAR INCREASED [None]
  - LEFT VENTRICULAR HYPERTROPHY [None]
  - SYNCOPE [None]
  - WEIGHT DECREASED [None]
  - PAIN IN EXTREMITY [None]
  - CHEST PAIN [None]
  - MUSCULOSKELETAL DISCOMFORT [None]
  - JUGULAR VEIN DISTENSION [None]
  - FATIGUE [None]
  - PULMONARY OEDEMA [None]
  - OEDEMA PERIPHERAL [None]
  - POLLAKIURIA [None]
  - CARDIAC FAILURE CONGESTIVE [None]
  - BLOOD PRESSURE DECREASED [None]
